FAERS Safety Report 15858595 (Version 3)
Quarter: 2019Q2

REPORT INFORMATION
  Report Type: Spontaneous
  Country: US (occurrence: US)
  Receive Date: 20190123
  Receipt Date: 20190506
  Transmission Date: 20190711
  Serious: Yes (Death, Other)
  Sender: FDA-Public Use
  Company Number: US-ASTRAZENECA-2019SE12209

PATIENT
  Age: 29029 Day
  Sex: Male
  Weight: 85.7 kg

DRUGS (35)
  1. PEPTO-BISMOL [Concomitant]
     Active Substance: BISMUTH SUBSALICYLATE
  2. DOXYCYCLINE. [Concomitant]
     Active Substance: DOXYCYCLINE
  3. TIMOLOL MALEATE. [Concomitant]
     Active Substance: TIMOLOL MALEATE
  4. PROTONIX [Suspect]
     Active Substance: PANTOPRAZOLE SODIUM
     Indication: GASTROOESOPHAGEAL REFLUX DISEASE
     Route: 042
     Dates: start: 2016, end: 2017
  5. BUMETANIDE. [Concomitant]
     Active Substance: BUMETANIDE
  6. FINASTERIDE. [Concomitant]
     Active Substance: FINASTERIDE
  7. NEXIUM [Suspect]
     Active Substance: ESOMEPRAZOLE MAGNESIUM
     Indication: GASTROOESOPHAGEAL REFLUX DISEASE
     Route: 048
     Dates: start: 2009, end: 2016
  8. NEXIUM [Suspect]
     Active Substance: ESOMEPRAZOLE MAGNESIUM
     Indication: GASTROOESOPHAGEAL REFLUX DISEASE
     Dosage: GENERIC
     Route: 048
     Dates: start: 2016
  9. FINASTERIDE. [Concomitant]
     Active Substance: FINASTERIDE
     Indication: PROSTATE CANCER
     Dates: start: 2010, end: 2016
  10. BENADRYL [Concomitant]
     Active Substance: DIPHENHYDRAMINE HYDROCHLORIDE
     Indication: HYPERSENSITIVITY
     Dates: start: 2016
  11. TUMS [Concomitant]
     Active Substance: CALCIUM CARBONATE
  12. CEFDINIR. [Concomitant]
     Active Substance: CEFDINIR
  13. COMBIGAN [Concomitant]
     Active Substance: BRIMONIDINE TARTRATE\TIMOLOL MALEATE
     Indication: GLAUCOMA
     Dates: start: 2010, end: 2016
  14. ONE-A-DAY [Concomitant]
     Active Substance: VITAMINS
     Indication: VITAMIN A DEFICIENCY
     Dates: start: 2016
  15. MIDODRINE [Concomitant]
     Active Substance: MIDODRINE
  16. PROTONIX [Suspect]
     Active Substance: PANTOPRAZOLE SODIUM
     Indication: GASTROOESOPHAGEAL REFLUX DISEASE
     Route: 042
     Dates: start: 20161230
  17. SIMVASTATIN. [Concomitant]
     Active Substance: SIMVASTATIN
     Indication: BLOOD CHOLESTEROL
     Dates: start: 2009, end: 2016
  18. TAGAMET HB OTC [Concomitant]
  19. ROLAIDS [Concomitant]
     Active Substance: CALCIUM CARBONATE\MAGNESIUM HYDROXIDE
  20. ASPIRIN. [Concomitant]
     Active Substance: ASPIRIN
  21. NEXIUM [Suspect]
     Active Substance: ESOMEPRAZOLE MAGNESIUM
     Indication: GASTROOESOPHAGEAL REFLUX DISEASE
     Route: 048
     Dates: start: 2009, end: 2017
  22. NEXIUM [Suspect]
     Active Substance: ESOMEPRAZOLE MAGNESIUM
     Indication: GASTROOESOPHAGEAL REFLUX DISEASE
     Dosage: FOR 14 DAYS
     Route: 048
     Dates: start: 2009, end: 2017
  23. COENZYME Q10 [Concomitant]
     Active Substance: UBIDECARENONE
     Indication: ENZYME ABNORMALITY
     Dates: start: 2016
  24. PEPCID AC OTC [Concomitant]
  25. LOPRESSOR [Concomitant]
     Active Substance: METOPROLOL TARTRATE
  26. FENTANYL. [Concomitant]
     Active Substance: FENTANYL
  27. ENALAPRIL [Concomitant]
     Active Substance: ENALAPRIL
     Indication: BLOOD PRESSURE MEASUREMENT
     Dates: start: 2010, end: 2016
  28. PEPCID COMPLETE OTC [Concomitant]
  29. ZANTAC 150 OTC [Concomitant]
  30. PRILOSEC OTC [Suspect]
     Active Substance: OMEPRAZOLE MAGNESIUM
     Indication: GASTROOESOPHAGEAL REFLUX DISEASE
     Route: 065
  31. PROTONIX [Suspect]
     Active Substance: PANTOPRAZOLE SODIUM
     Indication: GASTROOESOPHAGEAL REFLUX DISEASE
     Route: 065
  32. ALLOPURINOL. [Concomitant]
     Active Substance: ALLOPURINOL
     Indication: GOUT
     Dates: start: 2010, end: 2016
  33. PEPCID [Concomitant]
     Active Substance: FAMOTIDINE
  34. SIMVASTATIN. [Concomitant]
     Active Substance: SIMVASTATIN
  35. LINEZOLID. [Concomitant]
     Active Substance: LINEZOLID

REACTIONS (4)
  - Death [Fatal]
  - Chronic kidney disease [Unknown]
  - Renal failure [Unknown]
  - Acute kidney injury [Unknown]

NARRATIVE: CASE EVENT DATE: 20161229
